FAERS Safety Report 8499919 (Version 3)
Quarter: 2012Q4

REPORT INFORMATION
  Report Type: Spontaneous
  Country: DE (occurrence: None)
  Receive Date: 20120402
  Receipt Date: 20120919
  Transmission Date: 20130627
  Serious: Yes (Hospitalization)
  Sender: FDA-Public Use
  Company Number: ACO_29464_2012

PATIENT
  Age: 63 Year
  Sex: Female

DRUGS (11)
  1. DALFAMPRIDINE [Suspect]
     Indication: MULTIPLE SCLEROSIS
     Dosage: 10 MG, BID, ORAL
     Route: 048
     Dates: start: 20120206, end: 20120210
  2. CALCIUM CARBONATE [Concomitant]
  3. NEURONTIN [Concomitant]
  4. SPASMEX /00376202/ (TROSPIUM CHLORIDE) [Concomitant]
  5. DELIX /00885601/ (RAMIPRIL) [Concomitant]
  6. PERENTEROL /00243701/ (YEAST DRIED) [Concomitant]
  7. HYPNOTICS AND SEDATIVES (HYPNOTICS AND SEDATIVES) [Concomitant]
  8. IBUHEXAL (IBUPROFEN) [Concomitant]
  9. CLEXANE (ENOXAPARIN SODIUM) [Concomitant]
  10. DUROGESIC (FENTANYL) [Concomitant]
  11. REMERGIL (MIRTAZAPINE) [Concomitant]

REACTIONS (5)
  - Blood creatinine increased [None]
  - Confusional state [None]
  - Overdose [None]
  - Lobar pneumonia [None]
  - Medication error [None]
